FAERS Safety Report 14250860 (Version 1)
Quarter: 2017Q4

REPORT INFORMATION
  Report Type: Spontaneous
  Country: US (occurrence: US)
  Receive Date: 20171205
  Receipt Date: 20171205
  Transmission Date: 20180321
  Serious: No
  Sender: FDA-Public Use
  Company Number: US-PFIZER INC-2017520797

PATIENT
  Age: 38 Year
  Sex: Female

DRUGS (2)
  1. EFFEXOR XR [Suspect]
     Active Substance: VENLAFAXINE HYDROCHLORIDE
     Dosage: UNK
  2. AMOXIL [Suspect]
     Active Substance: AMOXICILLIN
     Dosage: UNK

REACTIONS (1)
  - Drug hypersensitivity [Unknown]
